FAERS Safety Report 22098850 (Version 7)
Quarter: 2025Q1

REPORT INFORMATION
  Report Type: Spontaneous
  Country: CA (occurrence: CA)
  Receive Date: 20230315
  Receipt Date: 20250131
  Transmission Date: 20250409
  Serious: Yes (Other)
  Sender: PFIZER
  Company Number: CA-PFIZER INC-202300107373

PATIENT
  Age: 49 Year
  Sex: Male
  Weight: 80 kg

DRUGS (4)
  1. XELJANZ [Suspect]
     Active Substance: TOFACITINIB CITRATE
     Indication: Colitis ulcerative
     Dosage: 10 MG, 2X/DAY, BID FOR INDUCTION (5MG BID MAINTENANCE)
     Route: 048
     Dates: start: 20230223
  2. MESALAMINE [Concomitant]
     Active Substance: MESALAMINE
  3. MESALAMINE [Concomitant]
     Active Substance: MESALAMINE
     Dates: start: 2022
  4. PREDNISONE [Concomitant]
     Active Substance: PREDNISONE
     Dates: start: 202301

REACTIONS (5)
  - Colitis ulcerative [Not Recovered/Not Resolved]
  - Therapeutic product effect incomplete [Unknown]
  - Fatigue [Not Recovered/Not Resolved]
  - Stress [Not Recovered/Not Resolved]
  - Gastrointestinal disorder [Unknown]

NARRATIVE: CASE EVENT DATE: 20230101
